FAERS Safety Report 8008964-4 (Version None)
Quarter: 2011Q4

REPORT INFORMATION
  Report Type: 
  Country: None (occurrence: None)
  Receive Date: 20111227
  Receipt Date: 20111223
  Transmission Date: 20120403
  Serious: Yes (Other)
  Sender: FDA-Public Use
  Company Number: US-PFIZER INC-2011312800

PATIENT
  Sex: Female
  Weight: 77.09 kg

DRUGS (3)
  1. MORPHINE [Concomitant]
     Indication: BACK PAIN
     Dosage: 100 MG, 3X/DAY
  2. CELEBREX [Suspect]
     Indication: ARTHRALGIA
     Dosage: UNK
     Route: 048
  3. LISINOPRIL [Concomitant]
     Indication: HYPERTENSION
     Dosage: 2.5 MG, DAILY

REACTIONS (4)
  - CEREBROVASCULAR ACCIDENT [None]
  - GASTRIC DISORDER [None]
  - COMA [None]
  - BLOOD SODIUM DECREASED [None]
